FAERS Safety Report 4763031-8 (Version None)
Quarter: 2005Q3

REPORT INFORMATION
  Report Type: 
  Country: None (occurrence: None)
  Receive Date: 20050907
  Receipt Date: 20050829
  Transmission Date: 20060218
  Serious: Yes (Hospitalization, Disabling)
  Sender: FDA-Public Use
  Company Number: US-MERCK-0508USA05074

PATIENT
  Age: 51 Year
  Sex: Male
  Weight: 66 kg

DRUGS (2)
  1. VIOXX [Suspect]
     Route: 048
     Dates: start: 20010601, end: 20030601
  2. FLOMAX [Concomitant]
     Route: 065

REACTIONS (3)
  - BLOOD CHOLESTEROL INCREASED [None]
  - MYOCARDIAL INFARCTION [None]
  - PNEUMONIA [None]
